FAERS Safety Report 9908127 (Version 1)
Quarter: 2013Q2

REPORT INFORMATION
  Report Type: Spontaneous
  Country: US (occurrence: None)
  Receive Date: 20130305
  Receipt Date: 20130305
  Transmission Date: 20140414
  Serious: Yes (Other)
  Sender: FDA-Public Use
  Company Number: 163-21880-12041891

PATIENT
  Age: 71 Year
  Sex: Female
  Weight: 92.99 kg

DRUGS (17)
  1. REVLIMID (LENALIDOMIDE) (25 MILLIGRAM, CAPSULES) [Suspect]
     Indication: PLASMA CELL MYELOMA
     Route: 048
     Dates: start: 200911
  2. VELCADE (BORTEZOMIB) [Concomitant]
  3. DECADRON (DEXAMETHASONE) [Concomitant]
  4. ASA (ACETYLSALICYLIC ACID) [Concomitant]
  5. PROCRIT (ERYTHROPOIETIN) [Concomitant]
  6. LISINOPRIL [Concomitant]
  7. AMLODIPINE [Concomitant]
  8. PROTONIX [Concomitant]
  9. CRESTOR (ROSUVASTATIN) [Concomitant]
  10. ACYCLOVIR (ACICLOVIR) (ACICLOVIR) [Concomitant]
  11. AMBIEN (ZOLPIDEM TARTRATE) [Concomitant]
  12. LOVAZA (OMEGA-3 MARINE TRIGLYCERIDES) [Concomitant]
  13. GLUCOSAMINE CHONDROITIN (GLUCOSAMINE W/CHONDROITIN SULFATE) [Concomitant]
  14. EPOGEN (EPOETIN ALFA) [Concomitant]
  15. CENTRUM SILVER [Concomitant]
  16. AMLODIPINE-BESYLATE-BENAZEPRIL HCL (AMLODIPINE BESYLATE W/BENAZEPRIL HYDROCHLOR.) [Concomitant]
  17. FISH OIL [Concomitant]

REACTIONS (3)
  - Gastrointestinal haemorrhage [None]
  - Muscle spasms [None]
  - Abdominal pain upper [None]
